FAERS Safety Report 18377318 (Version 2)
Quarter: 2020Q4

REPORT INFORMATION
  Report Type: Spontaneous
  Country: US (occurrence: US)
  Receive Date: 20201013
  Receipt Date: 20201216
  Transmission Date: 20210114
  Serious: Yes (Other)
  Sender: FDA-Public Use
  Company Number: US-LUNDBECK-DKLU3022248

PATIENT
  Age: 62 Year
  Sex: Female

DRUGS (2)
  1. NORTHERA [Suspect]
     Active Substance: DROXIDOPA
     Dosage: DOSE DECREASED
     Route: 048
     Dates: start: 202009
  2. NORTHERA [Suspect]
     Active Substance: DROXIDOPA
     Indication: ORTHOSTATIC HYPOTENSION
     Route: 048

REACTIONS (8)
  - Visual impairment [Unknown]
  - Feeling abnormal [Unknown]
  - Balance disorder [Unknown]
  - Headache [Unknown]
  - Eye injury [Not Recovered/Not Resolved]
  - Muscular weakness [Unknown]
  - Calcinosis [Not Recovered/Not Resolved]
  - Product dose omission issue [Unknown]
